FAERS Safety Report 21866837 (Version 4)
Quarter: 2023Q1

REPORT INFORMATION
  Report Type: Spontaneous
  Country: US (occurrence: US)
  Receive Date: 20230116
  Receipt Date: 20230302
  Transmission Date: 20230417
  Serious: Yes (Life-Threatening, Disabling, Other)
  Sender: FDA-Public Use
  Company Number: US-PFIZER INC-PV202300007628

PATIENT
  Age: 56 Year
  Sex: Female
  Weight: 54.431 kg

DRUGS (6)
  1. PREMPRO [Interacting]
     Active Substance: ESTROGENS, CONJUGATED\MEDROXYPROGESTERONE ACETATE
     Dosage: UNK
  2. PAXLOVID [Interacting]
     Active Substance: NIRMATRELVIR\RITONAVIR
     Indication: COVID-19 treatment
     Dosage: [PF-07321332 300 MG]/[RITONAVIR 100 MG]; 2X/DAY
     Route: 048
     Dates: start: 20221114, end: 20221118
  3. ATOMOXETINE [Interacting]
     Active Substance: ATOMOXETINE
     Dosage: UNK
  4. ESZOPICLONE [Interacting]
     Active Substance: ESZOPICLONE
     Indication: Sleep disorder
     Dosage: 3 MG, 1X/DAY (QHS) DURATION OF TREATMENT: 2+YEARS
     Dates: start: 20200723
  5. CITALOPRAM [Interacting]
     Active Substance: CITALOPRAM HYDROBROMIDE
     Indication: Affective disorder
     Dosage: 40 MG, 1X/DAY (QAM) DURATION OF TREATMENT: 2+YEARS
     Dates: start: 20200725
  6. BUSPIRONE [Interacting]
     Active Substance: BUSPIRONE HYDROCHLORIDE
     Indication: Affective disorder
     Dosage: 10 MG, 3X/DAY (TID) DURATION OF TREATMENT: 2+YEARS
     Dates: start: 20200813

REACTIONS (3)
  - Drug interaction [Unknown]
  - Suicidal ideation [Unknown]
  - Suicide attempt [Unknown]
